FAERS Safety Report 5736137-4 (Version None)
Quarter: 2008Q2

REPORT INFORMATION
  Report Type: 
  Country: None (occurrence: None)
  Receive Date: 20080513
  Receipt Date: 20080430
  Transmission Date: 20081010
  Serious: Yes (Disabling)
  Sender: FDA-Public Use
  Company Number: NO-GENENTECH-260650

PATIENT
  Sex: Male

DRUGS (1)
  1. AVASTIN [Suspect]
     Indication: MACULAR DEGENERATION
     Dosage: 1.25 MG, X4
     Route: 031
     Dates: start: 20070912

REACTIONS (3)
  - ATAXIA [None]
  - BALANCE DISORDER [None]
  - CEREBELLAR INFARCTION [None]
